FAERS Safety Report 19172622 (Version 1)
Quarter: 2021Q2

REPORT INFORMATION
  Report Type: Spontaneous
  Country: CN (occurrence: CN)
  Receive Date: 20210423
  Receipt Date: 20210423
  Transmission Date: 20210717
  Serious: Yes (Other)
  Sender: FDA-Public Use
  Company Number: CN-BAYER-2021-122174

PATIENT
  Age: 38 Year
  Sex: Female

DRUGS (1)
  1. MIRENA [Suspect]
     Active Substance: LEVONORGESTREL
     Indication: UTERINE HAEMORRHAGE
     Dosage: 20 ?G PER DAY, CONTINUOUSLY
     Route: 015
     Dates: start: 20201209

REACTIONS (5)
  - Device use issue [None]
  - Uterine haemorrhage [Unknown]
  - Off label use of device [None]
  - Contraindicated device used [None]
  - Blood loss anaemia [Unknown]

NARRATIVE: CASE EVENT DATE: 202012
